FAERS Safety Report 10498282 (Version 1)
Quarter: 2014Q4

REPORT INFORMATION
  Report Type: Spontaneous
  Country: FR (occurrence: FR)
  Receive Date: 20141006
  Receipt Date: 20141006
  Transmission Date: 20150528
  Serious: Yes (Hospitalization)
  Sender: FDA-Public Use
  Company Number: FR-009507513-1409FRA014896

PATIENT
  Age: 38 Year
  Sex: Female

DRUGS (1)
  1. NOROXINE [Suspect]
     Active Substance: NORFLOXACIN
     Dosage: 1 DF, BID
     Route: 048
     Dates: start: 20080112, end: 20080114

REACTIONS (5)
  - Gamma-glutamyltransferase increased [Recovering/Resolving]
  - Blood bilirubin increased [Recovering/Resolving]
  - Hepatocellular injury [Recovering/Resolving]
  - Hepatitis [Recovering/Resolving]
  - Jaundice [Recovering/Resolving]

NARRATIVE: CASE EVENT DATE: 20080114
